FAERS Safety Report 24627211 (Version 3)
Quarter: 2025Q2

REPORT INFORMATION
  Report Type: Spontaneous
  Country: US (occurrence: US)
  Receive Date: 20241116
  Receipt Date: 20250630
  Transmission Date: 20250716
  Serious: No
  Sender: SANOFI AVENTIS
  Company Number: US-SA-2024SA332344

PATIENT
  Sex: Female

DRUGS (1)
  1. DUPIXENT [Suspect]
     Active Substance: DUPILUMAB
     Indication: Eosinophilic oesophagitis
     Dosage: 300 MG, QW
     Route: 058

REACTIONS (8)
  - Lip dry [Unknown]
  - Chapped lips [Unknown]
  - Dry mouth [Unknown]
  - Nasal dryness [Unknown]
  - Skin exfoliation [Unknown]
  - Erythema [Unknown]
  - Oral herpes [Unknown]
  - Dry eye [Unknown]
